FAERS Safety Report 19990606 (Version 1)
Quarter: 2021Q4

REPORT INFORMATION
  Report Type: Report from Study
  Country: US (occurrence: US)
  Receive Date: 20211025
  Receipt Date: 20211025
  Transmission Date: 20220303
  Serious: Yes (Other)
  Sender: FDA-Public Use
  Company Number: US-KOREA IPSEN PHARMA-2021-25836

PATIENT
  Age: 44 Year
  Sex: Female

DRUGS (1)
  1. SOMATULINE DEPOT [Suspect]
     Active Substance: LANREOTIDE ACETATE
     Indication: Carcinoid tumour of the liver
     Dosage: 120MG/0.5ML
     Route: 058
     Dates: start: 202002

REACTIONS (6)
  - Cholelithiasis [Recovering/Resolving]
  - Abdominal pain upper [Not Recovered/Not Resolved]
  - Insomnia [Not Recovered/Not Resolved]
  - Blood glucose increased [Recovered/Resolved]
  - Alopecia [Not Recovered/Not Resolved]
  - Injection site mass [Not Recovered/Not Resolved]

NARRATIVE: CASE EVENT DATE: 20210714
